FAERS Safety Report 25973777 (Version 1)
Quarter: 2025Q4

REPORT INFORMATION
  Report Type: Spontaneous
  Country: EU (occurrence: EU)
  Receive Date: 20251029
  Receipt Date: 20251029
  Transmission Date: 20260118
  Serious: Yes (Other)
  Sender: CELLTRION
  Company Number: EU-AMGEN-CZESP2025204781

PATIENT

DRUGS (1)
  1. BEVACIZUMAB [Suspect]
     Active Substance: BEVACIZUMAB
     Indication: Acoustic neuroma
     Dosage: 5 MILLIGRAM/KILOGRAM, Q2WK, (30 DOSES)
     Route: 042

REACTIONS (2)
  - Acoustic neuroma [Unknown]
  - Off label use [Unknown]
